FAERS Safety Report 14953478 (Version 3)
Quarter: 2018Q3

REPORT INFORMATION
  Report Type: Spontaneous
  Country: JP (occurrence: JP)
  Receive Date: 20180530
  Receipt Date: 20180808
  Transmission Date: 20181010
  Serious: Yes (Hospitalization)
  Sender: FDA-Public Use
  Company Number: JP-ALLERGAN-1828099US

PATIENT
  Age: 73 Year
  Sex: Male

DRUGS (9)
  1. ASENAPINE MALEATE ? BP [Suspect]
     Active Substance: ASENAPINE MALEATE
     Indication: ALTERED STATE OF CONSCIOUSNESS
  2. ASENAPINE MALEATE ? BP [Suspect]
     Active Substance: ASENAPINE MALEATE
     Indication: PSYCHOTIC DISORDER
     Dosage: 5 MG, BID
     Route: 060
     Dates: start: 20180517, end: 20180518
  3. RISPERIDONE. [Suspect]
     Active Substance: RISPERIDONE
     Indication: PSYCHOTIC DISORDER
     Dosage: 2 MG, QD
     Route: 048
     Dates: start: 20180515, end: 20180515
  4. RISPERIDONE. [Suspect]
     Active Substance: RISPERIDONE
     Indication: ALTERED STATE OF CONSCIOUSNESS
  5. OLANZAPINE. [Suspect]
     Active Substance: OLANZAPINE
     Indication: PSYCHOTIC DISORDER
     Dosage: 5 MG, QD
     Route: 048
     Dates: start: 20180516, end: 20180516
  6. ASENAPINE MALEATE ? BP [Suspect]
     Active Substance: ASENAPINE MALEATE
     Indication: SCHIZOPHRENIA
  7. OLANZAPINE. [Suspect]
     Active Substance: OLANZAPINE
     Indication: ALTERED STATE OF CONSCIOUSNESS
  8. IMIPRAMINE HYDROCHLORIDE. [Concomitant]
     Active Substance: IMIPRAMINE HYDROCHLORIDE
     Indication: PRODUCT USED FOR UNKNOWN INDICATION
     Dosage: UNK UNK, UNKNOWN
     Route: 065
     Dates: end: 20180516
  9. REMERON [Concomitant]
     Active Substance: MIRTAZAPINE
     Indication: PRODUCT USED FOR UNKNOWN INDICATION
     Dosage: 15 MG, UNKNOWN
     Route: 065
     Dates: start: 20180511, end: 20180521

REACTIONS (7)
  - Oxygen saturation decreased [Recovering/Resolving]
  - Muscle rigidity [Recovering/Resolving]
  - Chills [Recovering/Resolving]
  - Neuroleptic malignant syndrome [Recovered/Resolved]
  - Pneumonia aspiration [Recovered/Resolved]
  - Tremor [Recovering/Resolving]
  - Pyrexia [Recovering/Resolving]

NARRATIVE: CASE EVENT DATE: 20180519
